FAERS Safety Report 6903538-8 (Version None)
Quarter: 2010Q3

REPORT INFORMATION
  Report Type: 
  Country: None (occurrence: None)
  Receive Date: 20100803
  Receipt Date: 20081023
  Transmission Date: 20110219
  Serious: No
  Sender: FDA-Public Use
  Company Number: US-PFIZER INC-2008083067

PATIENT
  Sex: Female
  Weight: 109.1 kg

DRUGS (3)
  1. LYRICA [Suspect]
     Indication: FIBROMYALGIA
     Dates: start: 20080829
  2. ALPRAZOLAM [Concomitant]
  3. GLIPIZIDE [Concomitant]

REACTIONS (6)
  - BLOOD GLUCOSE INCREASED [None]
  - DIZZINESS [None]
  - OLIGOMENORRHOEA [None]
  - PAIN [None]
  - SWELLING [None]
  - WEIGHT INCREASED [None]
